FAERS Safety Report 13883940 (Version 1)
Quarter: 2017Q3

REPORT INFORMATION
  Report Type: Spontaneous
  Country: SE (occurrence: SE)
  Receive Date: 20170820
  Receipt Date: 20170820
  Transmission Date: 20171127
  Serious: Yes (Other)
  Sender: FDA-Public Use
  Company Number: SE-TEVA-796460ACC

PATIENT
  Age: 68 Year
  Sex: Female

DRUGS (1)
  1. TERBINAFINE TEVA [Suspect]
     Active Substance: TERBINAFINE
     Indication: RASH
     Route: 003
     Dates: start: 20170610, end: 20170610

REACTIONS (8)
  - Eye irritation [Recovered/Resolved]
  - Dyspepsia [Recovered/Resolved]
  - Dysphonia [Recovered/Resolved]
  - Nasal congestion [Recovered/Resolved]
  - Abdominal pain [Recovered/Resolved]
  - Heart rate increased [Recovered/Resolved]
  - Hot flush [Recovered/Resolved]
  - Dysphagia [Recovered/Resolved]

NARRATIVE: CASE EVENT DATE: 20170615
